FAERS Safety Report 20745850 (Version 1)
Quarter: 2022Q2

REPORT INFORMATION
  Report Type: Spontaneous
  Country: US (occurrence: None)
  Receive Date: 20220423
  Receipt Date: 20220423
  Transmission Date: 20220720
  Serious: Yes (Disabling, Other)
  Sender: FDA-Public Use
  Company Number: None

PATIENT
  Age: 41 Year
  Sex: Male
  Weight: 130.5 kg

DRUGS (2)
  1. CIPROFLOXACIN HYDROCHLORIDE [Suspect]
     Active Substance: CIPROFLOXACIN HYDROCHLORIDE
     Indication: Colitis
     Dosage: OTHER QUANTITY : 1 TABLET(S);?FREQUENCY : TWICE A DAY;?
     Route: 048
     Dates: start: 20211213, end: 20211217
  2. LOSARTAN [Concomitant]
     Active Substance: LOSARTAN

REACTIONS (11)
  - Pain in extremity [None]
  - Tendon pain [None]
  - Hypertension [None]
  - Heart rate irregular [None]
  - Dyspnoea [None]
  - Mental impairment [None]
  - Disturbance in attention [None]
  - Tinnitus [None]
  - Paraesthesia [None]
  - Hypoaesthesia [None]
  - Transient ischaemic attack [None]

NARRATIVE: CASE EVENT DATE: 20211217
